FAERS Safety Report 21256607 (Version 1)
Quarter: 2022Q3

REPORT INFORMATION
  Report Type: Spontaneous
  Country: US (occurrence: US)
  Receive Date: 20220826
  Receipt Date: 20220826
  Transmission Date: 20221027
  Serious: No
  Sender: FDA-Public Use
  Company Number: US-TOLMAR, INC.-22US036086

PATIENT
  Age: 49 Year
  Sex: Male

DRUGS (3)
  1. KETOCONAZOLE [Suspect]
     Active Substance: KETOCONAZOLE
     Indication: Alopecia
     Dosage: 2 % PERCENT, 3/WEEK
     Route: 003
     Dates: start: 202208, end: 202208
  2. UNSPECIFIED INGREDIENT [Concomitant]
     Active Substance: UNSPECIFIED INGREDIENT
     Indication: Acne
     Dosage: UNK
  3. CLOBETASOL PROPIONATE [Concomitant]
     Active Substance: CLOBETASOL PROPIONATE
     Indication: Product used for unknown indication
     Dosage: 0.05 % PERCENT, Q 12 HR
     Route: 003

REACTIONS (3)
  - Off label use [Recovering/Resolving]
  - Skin irritation [Unknown]
  - Rash [Unknown]

NARRATIVE: CASE EVENT DATE: 20220801
